FAERS Safety Report 9850946 (Version 2)
Quarter: 2014Q1

REPORT INFORMATION
  Report Type: Spontaneous
  Country: US (occurrence: US)
  Receive Date: 20140128
  Receipt Date: 20140128
  Transmission Date: 20141002
  Serious: Yes (Hospitalization, Other)
  Sender: FDA-Public Use
  Company Number: US-B.I. PHARMACEUTICALS,INC./RIDGEFIELD-2013-BI-24026BP

PATIENT
  Sex: Male
  Weight: 95.25 kg

DRUGS (11)
  1. PRADAXA [Suspect]
     Indication: ATRIAL FIBRILLATION
     Dates: start: 20120126, end: 20130421
  2. VICODIN [Concomitant]
  3. BUMEX [Concomitant]
  4. SYNTHROID [Concomitant]
     Indication: HYPOTHYROIDISM
  5. METOLAZONE [Concomitant]
     Route: 048
  6. PROTONIX [Concomitant]
     Dosage: 40 MG
     Route: 048
  7. POTASSIUM CHLORIDE [Concomitant]
  8. CRESTOR [Concomitant]
  9. ZOLOFT [Concomitant]
  10. SOTALOL [Concomitant]
  11. XALATAN [Concomitant]

REACTIONS (5)
  - Gastrointestinal haemorrhage [Unknown]
  - Anaemia [Unknown]
  - Fall [Unknown]
  - Renal failure acute [Unknown]
  - Increased tendency to bruise [Unknown]
